FAERS Safety Report 13715406 (Version 2)
Quarter: 2017Q3

REPORT INFORMATION
  Report Type: Spontaneous
  Country: JP (occurrence: JP)
  Receive Date: 20170704
  Receipt Date: 20170713
  Transmission Date: 20171127
  Serious: Yes (Other)
  Sender: FDA-Public Use
  Company Number: PHJP2017JP021434

PATIENT
  Age: 68 Year
  Sex: Male

DRUGS (3)
  1. DEGARELIX [Concomitant]
     Active Substance: DEGARELIX
     Indication: PROSTATE CANCER
     Dosage: UNK, QD
     Route: 065
  2. ZOLEDRONATE [Suspect]
     Active Substance: ZOLEDRONIC ACID
     Indication: METASTASES TO BONE
     Dosage: 4 MG, 4W
     Route: 065
  3. BICALUTAMIDE. [Concomitant]
     Active Substance: BICALUTAMIDE
     Indication: PROSTATE CANCER
     Dosage: 80 MG, QD
     Route: 065

REACTIONS (6)
  - Neuralgia [Unknown]
  - Nerve root compression [Unknown]
  - Pain in extremity [Recovered/Resolved]
  - Muscular weakness [Recovering/Resolving]
  - Osteosclerosis [Unknown]
  - Movement disorder [Recovering/Resolving]
